FAERS Safety Report 6909411-3 (Version None)
Quarter: 2010Q3

REPORT INFORMATION
  Report Type: 
  Country: None (occurrence: None)
  Receive Date: 20100805
  Receipt Date: 20100709
  Transmission Date: 20110219
  Serious: Yes (Other)
  Sender: FDA-Public Use
  Company Number: PHEH2008US10232

PATIENT
  Sex: Female

DRUGS (14)
  1. AREDIA [Suspect]
     Indication: BONE DENSITY DECREASED
     Dosage: UNK
     Dates: start: 20030101, end: 20070101
  2. AREDIA [Suspect]
     Indication: OSTEOPOROSIS
  3. ZOMETA [Suspect]
     Indication: BONE DENSITY DECREASED
     Dosage: UNK
     Dates: start: 20030101, end: 20070214
  4. ZOMETA [Suspect]
     Indication: OSTEOPOROSIS
  5. LEVAQUIN [Concomitant]
  6. METRONIDAZOLE [Concomitant]
  7. VITAMIN B-12 [Concomitant]
  8. ALBUTEROL [Concomitant]
  9. AROMASIN [Concomitant]
  10. SYMBICORT [Concomitant]
  11. DILTIAZEM [Concomitant]
  12. KLONOPIN [Concomitant]
  13. LUNESTA [Concomitant]
  14. FENTANYL [Concomitant]

REACTIONS (17)
  - ANXIETY [None]
  - ARTHRALGIA [None]
  - CEREBRAL ISCHAEMIA [None]
  - DEPRESSION [None]
  - FAILURE TO THRIVE [None]
  - HYPERTENSION [None]
  - INJURY [None]
  - INSOMNIA [None]
  - MUSCLE SPASMS [None]
  - ORAL PAIN [None]
  - OSTEONECROSIS OF JAW [None]
  - PAIN [None]
  - PAIN IN JAW [None]
  - PHYSICAL DISABILITY [None]
  - RENAL CYST [None]
  - VOCAL CORD PARALYSIS [None]
  - WEIGHT DECREASED [None]
